FAERS Safety Report 19403913 (Version 1)
Quarter: 2021Q2

REPORT INFORMATION
  Report Type: Spontaneous
  Country: US (occurrence: US)
  Receive Date: 20210610
  Receipt Date: 20210610
  Transmission Date: 20210717
  Serious: No
  Sender: FDA-Public Use
  Company Number: US-ROCHE-2774973

PATIENT
  Sex: Female

DRUGS (2)
  1. ENSPRYNG [Suspect]
     Active Substance: SATRALIZUMAB-MWGE
     Indication: NEUROMYELITIS OPTICA SPECTRUM DISORDER
     Route: 058
     Dates: start: 20201101
  2. COVID?19 VACCINE [Concomitant]
     Dosage: START DATE: APPRO FEB/MAR 2021

REACTIONS (2)
  - Malaise [Recovered/Resolved]
  - Migraine [Recovered/Resolved]
